FAERS Safety Report 7464744-X (Version None)
Quarter: 2011Q2

REPORT INFORMATION
  Report Type: 
  Country: None (occurrence: None)
  Receive Date: 20110509
  Receipt Date: 20110425
  Transmission Date: 20111010
  Serious: Yes (Hospitalization)
  Sender: FDA-Public Use
  Company Number: US-ELI_LILLY_AND_COMPANY-US201004005962

PATIENT
  Sex: Female

DRUGS (5)
  1. FORTEO [Suspect]
     Dosage: 20 UG, QD
     Route: 065
  2. FORTEO [Suspect]
     Dosage: 20 UG, QD
     Route: 065
  3. FORTEO [Suspect]
     Indication: OSTEOPOROSIS
     Dosage: 20 UG, QD
     Route: 065
     Dates: start: 20100127
  4. FORTEO [Suspect]
     Dosage: 20 UG, QD
  5. GEODON [Concomitant]

REACTIONS (20)
  - LOWER RESPIRATORY TRACT INFECTION [None]
  - CHRONIC OBSTRUCTIVE PULMONARY DISEASE [None]
  - DYSPNOEA [None]
  - ARTHROPATHY [None]
  - MALAISE [None]
  - ELECTROLYTE IMBALANCE [None]
  - BONE DISORDER [None]
  - INJECTION SITE HAEMORRHAGE [None]
  - BONE DENSITY DECREASED [None]
  - PAIN [None]
  - EMPHYSEMA [None]
  - FATIGUE [None]
  - AUTOIMMUNE DISORDER [None]
  - OSTEOARTHRITIS [None]
  - DEPRESSION [None]
  - EXOSTOSIS [None]
  - DENTAL PROSTHESIS PLACEMENT [None]
  - MUSCLE SPASMS [None]
  - FIBROMYALGIA [None]
  - BURNOUT SYNDROME [None]
